FAERS Safety Report 6395051-4 (Version None)
Quarter: 2009Q4

REPORT INFORMATION
  Report Type: 
  Country: None (occurrence: None)
  Receive Date: 20091009
  Receipt Date: 20090929
  Transmission Date: 20100525
  Serious: Yes (Other)
  Sender: FDA-Public Use
  Company Number: FR-PFIZER INC-2009170971

PATIENT
  Age: 35 Year

DRUGS (2)
  1. ZITHROMAX [Suspect]
     Indication: HIDRADENITIS
     Dosage: 250 MG, 1X/DAY
     Route: 048
     Dates: start: 20080924, end: 20081202
  2. METRONIDAZOLE [Suspect]
     Indication: HIDRADENITIS
     Dosage: 500 MG, 3X/DAY
     Route: 048
     Dates: start: 20080924, end: 20081202

REACTIONS (1)
  - NEUROPATHY PERIPHERAL [None]
